FAERS Safety Report 9161961 (Version 1)
Quarter: 2013Q1

REPORT INFORMATION
  Report Type: Spontaneous
  Country: US (occurrence: US)
  Receive Date: 20130314
  Receipt Date: 20130314
  Transmission Date: 20140127
  Serious: No
  Sender: FDA-Public Use
  Company Number: US-009507513-1303USA006472

PATIENT
  Sex: Male
  Weight: 79.37 kg

DRUGS (9)
  1. VICTRELIS [Suspect]
     Dosage: FOUR 200 MG CAPSULES (EVERY 7-9 HOURS)
  2. RIBAVIRIN [Suspect]
  3. PEGASYS [Suspect]
     Dosage: 180 MICROGRAM/M
  4. COREG [Concomitant]
  5. ZOLOFT [Concomitant]
  6. ALEVE [Concomitant]
  7. CENTRUM (MINERALS (UNSPECIFIED) (+) VITAMINS (UNSPECIFIED)) [Concomitant]
  8. OMEGA-3 MARINE TRIGLYCERIDES [Concomitant]
  9. CYANOCOBALAMIN [Concomitant]

REACTIONS (1)
  - Fatigue [Unknown]
